FAERS Safety Report 4465448-8 (Version None)
Quarter: 2004Q4

REPORT INFORMATION
  Report Type: 
  Country: None (occurrence: None)
  Receive Date: 20041004
  Receipt Date: 20040922
  Transmission Date: 20050328
  Serious: Yes (Hospitalization)
  Sender: FDA-Public Use
  Company Number: DE-BRISTOL-MYERS SQUIBB COMPANY-12711735

PATIENT
  Age: 29 Year
  Sex: Male
  Weight: 79 kg

DRUGS (2)
  1. ABILIFY [Suspect]
     Indication: SCHIZOPHRENIA
     Dates: start: 20040824
  2. TRIMIPRAMINE MALEATE [Concomitant]
     Indication: SLEEP DISORDER

REACTIONS (1)
  - SCHIZOPHRENIA [None]
